FAERS Safety Report 9449146 (Version 1)
Quarter: 2013Q3

REPORT INFORMATION
  Report Type: Spontaneous
  Country: US (occurrence: None)
  Receive Date: 20130806
  Receipt Date: 20130806
  Transmission Date: 20140515
  Serious: Yes (Hospitalization)
  Sender: FDA-Public Use
  Company Number: 2013US002188

PATIENT
  Age: 52 Year
  Sex: Female
  Weight: 54 kg

DRUGS (5)
  1. ICLUSIG [Suspect]
     Indication: ACUTE LYMPHOCYTIC LEUKAEMIA
     Route: 048
     Dates: start: 20130608, end: 20130717
  2. PANTOPRAZOLE (PANTOPRAZOLE) [Concomitant]
  3. AMLODIPINE (AMLODIPINE) [Concomitant]
  4. TRAZODONE (TRAZODONE) [Concomitant]
  5. VFEND (VORICONAZOLE) [Concomitant]

REACTIONS (2)
  - Visual impairment [None]
  - Drug ineffective [None]
